FAERS Safety Report 5311855-0 (Version None)
Quarter: 2007Q2

REPORT INFORMATION
  Report Type: 
  Country: None (occurrence: None)
  Receive Date: 20070427
  Receipt Date: 20070427
  Transmission Date: 20071010
  Serious: Yes (Hospitalization)
  Sender: FDA-Public Use
  Company Number: None

PATIENT
  Age: 72 Year
  Sex: Male
  Weight: 75.7 kg

DRUGS (13)
  1. SUTENT [Suspect]
     Indication: METASTATIC RENAL CELL CARCINOMA
     Dosage: 25MG  QDAILY  PO
     Route: 048
     Dates: start: 20070411, end: 20070418
  2. SYNTHROID [Concomitant]
  3. METOPROLOL SUCCINATE [Concomitant]
  4. SSI [Concomitant]
  5. ALBUTEROL [Concomitant]
  6. LANTUS [Concomitant]
  7. NOVOLOG [Concomitant]
  8. ZOCOR [Concomitant]
  9. FEXOFENADINE [Concomitant]
  10. VIT B [Concomitant]
  11. ZANTAC [Concomitant]
  12. PRILOSEC [Concomitant]
  13. IBUPROFEN [Concomitant]

REACTIONS (6)
  - ANAEMIA [None]
  - BLOOD GLUCOSE DECREASED [None]
  - CEREBRAL HAEMORRHAGE [None]
  - DRUG TOLERANCE DECREASED [None]
  - INTRACRANIAL TUMOUR HAEMORRHAGE [None]
  - METASTASES TO CENTRAL NERVOUS SYSTEM [None]
